FAERS Safety Report 4666710-6 (Version None)
Quarter: 2005Q2

REPORT INFORMATION
  Report Type: 
  Country: None (occurrence: None)
  Receive Date: 20050519
  Receipt Date: 20040204
  Transmission Date: 20051028
  Serious: Yes (Other)
  Sender: FDA-Public Use
  Company Number: PHEH2004US01541

PATIENT
  Age: 63 Year
  Sex: Male

DRUGS (3)
  1. AREDIA [Suspect]
     Indication: MULTIPLE MYELOMA
     Dosage: 90 MG, QMO
     Dates: start: 20010101
  2. ALLOPURINOL [Concomitant]
  3. HYTRIN [Concomitant]

REACTIONS (3)
  - GINGIVAL DISORDER [None]
  - GINGIVAL HYPERPIGMENTATION [None]
  - OSTEONECROSIS [None]
